FAERS Safety Report 8716239 (Version 2)
Quarter: 2012Q4

REPORT INFORMATION
  Report Type: 
  Country: FR (occurrence: FR)
  Receive Date: 20120810
  Receipt Date: 20121219
  Transmission Date: 20130627
  Serious: Yes (Hospitalization)
  Sender: FDA-Public Use
  Company Number: FR-009507513-1207FRA011143

PATIENT
  Sex: Male

DRUGS (2)
  1. NOROXINE [Suspect]
     Indication: URINARY TRACT INFECTION
     Dosage: 2 DF, qd
     Route: 048
     Dates: start: 201206, end: 201207
  2. ZESTORETIC [Concomitant]
     Indication: HYPERTENSION

REACTIONS (2)
  - Pemphigoid [Not Recovered/Not Resolved]
  - Arthralgia [Unknown]
